FAERS Safety Report 7391166-2 (Version None)
Quarter: 2011Q2

REPORT INFORMATION
  Report Type: 
  Country: None (occurrence: None)
  Receive Date: 20110404
  Receipt Date: 20100525
  Transmission Date: 20111010
  Serious: No
  Sender: FDA-Public Use
  Company Number: US-PFIZER INC-2010066372

PATIENT
  Sex: Female
  Weight: 59 kg

DRUGS (3)
  1. ZOLOFT [Suspect]
     Indication: PANIC DISORDER
  2. ZOLOFT [Suspect]
     Indication: DEPRESSION
     Dosage: 50 MG, DAILY
     Route: 048
     Dates: end: 20100517
  3. KLONOPIN [Concomitant]
     Dosage: 0.25 MG, DAILY

REACTIONS (2)
  - DRUG ADMINISTRATION ERROR [None]
  - PANIC ATTACK [None]
